FAERS Safety Report 12170689 (Version 1)
Quarter: 2016Q1

REPORT INFORMATION
  Report Type: Spontaneous
  Country: SA (occurrence: SA)
  Receive Date: 20160311
  Receipt Date: 20160311
  Transmission Date: 20160526
  Serious: Yes (Other)
  Sender: FDA-Public Use
  Company Number: SA-SUN PHARMACEUTICAL INDUSTRIES LTD-2016R1-112881

PATIENT
  Age: 32 Year
  Sex: Female

DRUGS (2)
  1. CISPLATIN. [Suspect]
     Active Substance: CISPLATIN
     Indication: SEROUS CYSTADENOCARCINOMA OVARY
     Route: 065
  2. DOCETAXEL. [Suspect]
     Active Substance: DOCETAXEL
     Indication: SEROUS CYSTADENOCARCINOMA OVARY
     Route: 065

REACTIONS (1)
  - Exposure during pregnancy [Unknown]
